FAERS Safety Report 24580034 (Version 1)
Quarter: 2024Q4

REPORT INFORMATION
  Report Type: Spontaneous
  Country: US (occurrence: None)
  Receive Date: 20241104
  Receipt Date: 20241104
  Transmission Date: 20250115
  Serious: Yes (Hospitalization)
  Sender: Public
  Company Number: None

PATIENT
  Age: 51 Year
  Sex: Female

DRUGS (1)
  1. LORAZEPAM [Suspect]
     Active Substance: LORAZEPAM
     Indication: Anxiety

REACTIONS (7)
  - Alcohol poisoning [None]
  - Syncope [None]
  - Fall [None]
  - Hypotension [None]
  - Hypoglycaemia [None]
  - Device data issue [None]
  - Device use error [None]

NARRATIVE: CASE EVENT DATE: 20240726
